FAERS Safety Report 5277156-4 (Version None)
Quarter: 2007Q1

REPORT INFORMATION
  Report Type: 
  Country: None (occurrence: None)
  Receive Date: 20070322
  Receipt Date: 20070322
  Transmission Date: 20070707
  Serious: Yes (Hospitalization)
  Sender: FDA-Public Use
  Company Number: None

PATIENT
  Age: 68 Year
  Sex: Female
  Weight: 69 kg

DRUGS (5)
  1. CUBICIN [Suspect]
     Indication: BACTERAEMIA
     Dosage: 350 MG EVERY 24 HOURS IV
     Route: 042
     Dates: start: 20061118, end: 20061120
  2. TACROLIMUS [Concomitant]
  3. AZATHIOPRINE [Concomitant]
  4. PREDNISONE [Concomitant]
  5. IMIPENEM-CILASTIN [Concomitant]

REACTIONS (3)
  - BLOOD CREATINE PHOSPHOKINASE INCREASED [None]
  - DYSPNOEA [None]
  - MUSCULAR WEAKNESS [None]
